FAERS Safety Report 23426182 (Version 1)
Quarter: 2024Q1

REPORT INFORMATION
  Report Type: Spontaneous
  Country: US (occurrence: US)
  Receive Date: 20240122
  Receipt Date: 20240122
  Transmission Date: 20240410
  Serious: Yes (Other)
  Sender: FDA-Public Use
  Company Number: US-TEVA-VS-3135509

PATIENT
  Age: 71 Year

DRUGS (1)
  1. AMOXICILLIN [Suspect]
     Active Substance: AMOXICILLIN
     Indication: Product used for unknown indication
     Dosage: FOR 21 DAYS FOLLOWED BY 7 DAYS OFF OF A 28 DAY CYCLE-ORAL.
     Route: 048

REACTIONS (1)
  - Neutropenia [Unknown]
